FAERS Safety Report 9475468 (Version 2)
Quarter: 2016Q2

REPORT INFORMATION
  Report Type: Spontaneous
  Country: HK (occurrence: HK)
  Receive Date: 20130826
  Receipt Date: 20160509
  Transmission Date: 20160815
  Serious: No
  Sender: FDA-Public Use
  Company Number: HK-ROCHE-1264329

PATIENT
  Sex: Female

DRUGS (1)
  1. ROCEPHIN [Suspect]
     Active Substance: CEFTRIAXONE SODIUM
     Indication: STREPTOCOCCAL INFECTION
     Route: 042

REACTIONS (1)
  - Pregnancy [Unknown]
